FAERS Safety Report 20382868 (Version 7)
Quarter: 2022Q3

REPORT INFORMATION
  Report Type: Report from Study
  Country: CN (occurrence: None)
  Receive Date: 20220127
  Receipt Date: 20220805
  Transmission Date: 20221027
  Serious: Yes (Hospitalization)
  Sender: FDA-Public Use
  Company Number: CN-ROCHE-3007607

PATIENT
  Age: 80 Year
  Sex: Male
  Weight: 62 kg

DRUGS (7)
  1. ATEZOLIZUMAB [Suspect]
     Active Substance: ATEZOLIZUMAB
     Indication: Oesophageal squamous cell carcinoma metastatic
     Dosage: ON 30-DEC-2021, RECEIVED MOST RECENT DOSE PRIOR TO AE AND SAE
     Route: 041
     Dates: start: 20210730
  2. TIRAGOLUMAB [Suspect]
     Active Substance: TIRAGOLUMAB
     Indication: Oesophageal squamous cell carcinoma metastatic
     Dosage: ON 30-DEC-2021, RECEIVED MOST RECENT DOSE PRIOR TO AE AND SAE
     Route: 042
     Dates: start: 20210730
  3. PACLITAXEL [Suspect]
     Active Substance: PACLITAXEL
     Indication: Oesophageal squamous cell carcinoma metastatic
     Dosage: ON 19-NOV-2021, RECEIVED MOST RECENT DOSE 210 MG PRIOR TO AE AND SAE
     Route: 042
     Dates: start: 20210731
  4. CISPLATIN [Suspect]
     Active Substance: CISPLATIN
     Indication: Oesophageal squamous cell carcinoma metastatic
     Dosage: ON 31-JUL-2021, RECEIVED MOST RECENT DOSE 108 MG PRIOR TO AE AND SAE
     Route: 042
     Dates: start: 20210731
  5. EPRAZOLE ENTERIC-COATED TABLET [Concomitant]
     Route: 048
     Dates: start: 20211028
  6. ONDANSETRON [Concomitant]
     Active Substance: ONDANSETRON
     Route: 048
     Dates: start: 20210916
  7. OSELTAMIVIR PHOSPHATE [Concomitant]
     Active Substance: OSELTAMIVIR PHOSPHATE
     Route: 048
     Dates: start: 20220119, end: 20220120

REACTIONS (1)
  - Chronic obstructive pulmonary disease [Recovered/Resolved]

NARRATIVE: CASE EVENT DATE: 20220103
